FAERS Safety Report 9237153 (Version 1)
Quarter: 2013Q2

REPORT INFORMATION
  Report Type: Spontaneous
  Country: US (occurrence: US)
  Receive Date: 20130417
  Receipt Date: 20130417
  Transmission Date: 20140414
  Serious: No
  Sender: FDA-Public Use
  Company Number: US-ASTRAZENECA-2013SE19505

PATIENT
  Sex: Female

DRUGS (7)
  1. METOPROLOL [Suspect]
     Route: 065
  2. METOPROLOL [Suspect]
     Route: 065
  3. BRILINTA [Suspect]
     Indication: ACUTE MYOCARDIAL INFARCTION
     Route: 048
  4. BRILINTA [Suspect]
     Indication: ACUTE CORONARY SYNDROME
     Route: 048
  5. SIMVASTATIN [Concomitant]
     Dosage: UNK
  6. ASPIRIN [Concomitant]
     Dosage: UNK
  7. OTHER MEDICINES [Concomitant]
     Dosage: UNK

REACTIONS (1)
  - Rash [Not Recovered/Not Resolved]
